FAERS Safety Report 19218078 (Version 7)
Quarter: 2022Q4

REPORT INFORMATION
  Report Type: Report from Study
  Country: DE (occurrence: DE)
  Receive Date: 20210502
  Receipt Date: 20221207
  Transmission Date: 20230113
  Serious: Yes (Death, Hospitalization, Other)
  Sender: FDA-Public Use
  Company Number: DE-BRISTOL-MYERS SQUIBB COMPANY-BMS-2021-002764

PATIENT
  Age: 84 Year
  Sex: Male

DRUGS (14)
  1. NIVOLUMAB [Suspect]
     Active Substance: NIVOLUMAB
     Indication: Malignant melanoma
     Dosage: 83 MG ABSOLUT
     Route: 065
     Dates: start: 20180417, end: 20180521
  2. NIVOLUMAB [Suspect]
     Active Substance: NIVOLUMAB
     Dosage: 480 MG ABSOLUT
     Route: 065
     Dates: start: 20190702, end: 20190927
  3. NIVOLUMAB [Suspect]
     Active Substance: NIVOLUMAB
     Dosage: UNK, Q3WK
     Route: 065
     Dates: start: 20180417, end: 20201203
  4. NIVOLUMAB [Suspect]
     Active Substance: NIVOLUMAB
     Dosage: 240 MG ABSOLUT
     Route: 065
     Dates: start: 20200428, end: 20200618
  5. NIVOLUMAB [Suspect]
     Active Substance: NIVOLUMAB
     Dosage: 71 MG ABSOLUT
     Route: 065
     Dates: start: 20200928, end: 20201123
  6. NIVOLUMAB [Suspect]
     Active Substance: NIVOLUMAB
     Dosage: 78 MG ABSOLUT
     Route: 065
     Dates: start: 20190521
  7. NIVOLUMAB [Suspect]
     Active Substance: NIVOLUMAB
     Route: 042
     Dates: start: 20180417, end: 20201203
  8. IPILIMUMAB [Suspect]
     Active Substance: IPILIMUMAB
     Indication: Malignant melanoma
     Dosage: UNK, Q3WK
     Route: 065
     Dates: start: 20180417, end: 20201203
  9. IPILIMUMAB [Suspect]
     Active Substance: IPILIMUMAB
     Dosage: 249 MG ABSOLUT
     Route: 065
     Dates: start: 20180417, end: 20180514
  10. IPILIMUMAB [Suspect]
     Active Substance: IPILIMUMAB
     Dosage: 240 MG ABSOLUT
     Route: 065
     Dates: start: 20190430
  11. IPILIMUMAB [Suspect]
     Active Substance: IPILIMUMAB
     Dosage: 235 MG ABSOLUT
     Route: 065
     Dates: start: 20190521
  12. IPILIMUMAB [Suspect]
     Active Substance: IPILIMUMAB
     Dosage: 213 MG ABSOLUT
     Route: 065
     Dates: start: 20201123, end: 20201203
  13. PIPERACILLINUM NATRICUM [Concomitant]
     Indication: Product used for unknown indication
     Route: 065
  14. METHYLPREDNISOLONE [Concomitant]
     Active Substance: METHYLPREDNISOLONE
     Indication: Product used for unknown indication
     Route: 065

REACTIONS (6)
  - Malignant neoplasm progression [Fatal]
  - Immune-mediated lung disease [Not Recovered/Not Resolved]
  - Ascites [Not Recovered/Not Resolved]
  - Gastritis [Unknown]
  - Diarrhoea [Recovered/Resolved]
  - Off label use [Unknown]

NARRATIVE: CASE EVENT DATE: 20201014
